FAERS Safety Report 9780896 (Version 1)
Quarter: 2013Q4

REPORT INFORMATION
  Report Type: Spontaneous
  Country: DE (occurrence: DE)
  Receive Date: 20131224
  Receipt Date: 20131224
  Transmission Date: 20140711
  Serious: Yes (Life-Threatening, Hospitalization, Congenital Anomaly, Other)
  Sender: FDA-Public Use
  Company Number: DE-DRREDDYS-GER/GER/13/0036570

PATIENT
  Age: 1 Day
  Sex: Female
  Weight: 3.2 kg

DRUGS (6)
  1. CITALOPRAM [Suspect]
     Indication: PRODUCT USED FOR UNKNOWN INDICATION
     Route: 064
     Dates: start: 20091009
  2. CITALOPRAM [Suspect]
     Route: 064
     Dates: end: 20100426
  3. AMITRIPTYLINE [Suspect]
     Indication: PRODUCT USED FOR UNKNOWN INDICATION
     Route: 064
     Dates: start: 20100426, end: 20100718
  4. PARACETAMOL [Concomitant]
     Indication: PRODUCT USED FOR UNKNOWN INDICATION
     Route: 064
  5. FOLIO [Concomitant]
     Indication: PRODUCT USED FOR UNKNOWN INDICATION
     Route: 064
     Dates: end: 20100316
  6. DIAZEPAM [Concomitant]
     Indication: PRODUCT USED FOR UNKNOWN INDICATION
     Route: 064
     Dates: start: 20100506

REACTIONS (5)
  - Ventricular septal defect [Not Recovered/Not Resolved]
  - Truncus arteriosus persistent [Recovered/Resolved with Sequelae]
  - Atrial septal defect [Unknown]
  - Fallot^s tetralogy [Unknown]
  - Foetal exposure during pregnancy [Unknown]
